FAERS Safety Report 17718092 (Version 1)
Quarter: 2020Q2

REPORT INFORMATION
  Report Type: Spontaneous
  Country: US (occurrence: US)
  Receive Date: 20200428
  Receipt Date: 20200428
  Transmission Date: 20200714
  Serious: Yes (Hospitalization)
  Sender: FDA-Public Use
  Company Number: None

PATIENT
  Age: 25 Month
  Sex: Male
  Weight: 14.9 kg

DRUGS (3)
  1. BLEOMYCIN [Suspect]
     Active Substance: BLEOMYCIN SULFATE
     Dosage: ?          OTHER STRENGTH:9.6 UNIT;?
     Dates: end: 20200324
  2. CARBOPLATIN. [Suspect]
     Active Substance: CARBOPLATIN
     Indication: REGIONAL CHEMOTHERAPY
     Dates: start: 20200324, end: 20200409
  3. ETOPOSIDE (VP-16) [Suspect]
     Active Substance: ETOPOSIDE
     Dates: end: 20200328

REACTIONS (8)
  - Pyrexia [None]
  - Neutrophil count decreased [None]
  - Diarrhoea [None]
  - Candida nappy rash [None]
  - Rotavirus test positive [None]
  - Hypokalaemia [None]
  - Dermatitis [None]
  - Ileus [None]

NARRATIVE: CASE EVENT DATE: 20200401
